FAERS Safety Report 5786645-5 (Version None)
Quarter: 2008Q2

REPORT INFORMATION
  Report Type: 
  Country: None (occurrence: None)
  Receive Date: 20080624
  Receipt Date: 20080612
  Transmission Date: 20081010
  Serious: Yes (Other)
  Sender: FDA-Public Use
  Company Number: US-PFIZER INC-2008051848

PATIENT
  Sex: Female
  Weight: 65.909 kg

DRUGS (2)
  1. CHANTIX [Suspect]
     Indication: SMOKING CESSATION THERAPY
  2. ANTIHISTAMINES [Concomitant]

REACTIONS (7)
  - CARDIAC VALVE DISEASE [None]
  - DEPRESSION [None]
  - ILL-DEFINED DISORDER [None]
  - IRRITABILITY [None]
  - MID-LIFE CRISIS [None]
  - PALPITATIONS [None]
  - WRONG TECHNIQUE IN DRUG USAGE PROCESS [None]
